FAERS Safety Report 10961072 (Version 1)
Quarter: 2015Q1

REPORT INFORMATION
  Report Type: Spontaneous
  Country: US (occurrence: US)
  Receive Date: 20150327
  Receipt Date: 20150327
  Transmission Date: 20150721
  Serious: Yes (Life-Threatening, Hospitalization, Other)
  Sender: FDA-Public Use
  Company Number: US-SUN PHARMACEUTICAL INDUSTRIES LTD-2015SUN00816

PATIENT
  Age: 15 Year
  Sex: Male

DRUGS (1)
  1. MINOCYCLINE HYDROCHLORIDE CAPSULES USP, 100 MG [Suspect]
     Active Substance: MINOCYCLINE HYDROCHLORIDE
     Indication: ACNE
     Dosage: UNK
     Route: 065

REACTIONS (8)
  - Cardiac failure [Recovering/Resolving]
  - Myocarditis [Recovering/Resolving]
  - Tubulointerstitial nephritis [None]
  - Cardiogenic shock [Recovering/Resolving]
  - Gastrointestinal disorder [None]
  - Drug reaction with eosinophilia and systemic symptoms [Recovering/Resolving]
  - Swelling face [None]
  - Lymphadenopathy [None]
